FAERS Safety Report 20877953 (Version 1)
Quarter: 2022Q2

REPORT INFORMATION
  Report Type: Spontaneous
  Country: US (occurrence: US)
  Receive Date: 20220526
  Receipt Date: 20220526
  Transmission Date: 20220721
  Serious: Yes (Other)
  Sender: FDA-Public Use
  Company Number: US-SAOL THERAPEUTICS-2022SAO00119

PATIENT
  Age: 42 Year
  Sex: Female

DRUGS (2)
  1. LIORESAL [Suspect]
     Active Substance: BACLOFEN
     Indication: Pain
     Dosage: UNK ?G, \DAY
     Route: 037
     Dates: end: 20220428
  2. LIORESAL [Suspect]
     Active Substance: BACLOFEN
     Indication: Muscle spasticity

REACTIONS (1)
  - Impaired healing [Unknown]

NARRATIVE: CASE EVENT DATE: 20211212
